FAERS Safety Report 25618900 (Version 1)
Quarter: 2025Q3

REPORT INFORMATION
  Report Type: Spontaneous
  Country: US (occurrence: US)
  Receive Date: 20250729
  Receipt Date: 20250729
  Transmission Date: 20251020
  Serious: Yes (Life-Threatening, Other)
  Sender: NOVO NORDISK
  Company Number: US-NOVOPROD-1483767

PATIENT
  Age: 50 Year

DRUGS (4)
  1. OZEMPIC [Suspect]
     Active Substance: SEMAGLUTIDE
     Indication: Type 2 diabetes mellitus
     Dates: start: 202102, end: 202310
  2. OZEMPIC [Suspect]
     Active Substance: SEMAGLUTIDE
     Indication: Weight control
  3. VICTOZA [Suspect]
     Active Substance: LIRAGLUTIDE
     Indication: Type 2 diabetes mellitus
     Dates: start: 201901, end: 201902
  4. VICTOZA [Suspect]
     Active Substance: LIRAGLUTIDE
     Indication: Weight control

REACTIONS (4)
  - Dehydration [Not Recovered/Not Resolved]
  - Gallbladder injury [Not Recovered/Not Resolved]
  - Impaired gastric emptying [Not Recovered/Not Resolved]
  - Emotional distress [Not Recovered/Not Resolved]
